FAERS Safety Report 9851832 (Version 2)
Quarter: 2014Q1

REPORT INFORMATION
  Report Type: Other
  Country: US (occurrence: US)
  Receive Date: 20140129
  Receipt Date: 20140326
  Transmission Date: 20141002
  Serious: Yes (Other)
  Sender: FDA-Public Use
  Company Number: US-SHIRE-ALL1-2014-00518

PATIENT
  Age: 12 Year
  Sex: Male
  Weight: 23.13 kg

DRUGS (2)
  1. ELAPRASE [Suspect]
     Indication: PRODUCT USED FOR UNKNOWN INDICATION
     Dosage: UNK, UNKNOWN
     Route: 041
  2. SALINE [Suspect]
     Indication: PRODUCT USED FOR UNKNOWN INDICATION
     Dosage: UNK, UNKNOWN
     Route: 042

REACTIONS (3)
  - Convulsion [Recovered/Resolved]
  - Infusion site extravasation [Recovered/Resolved]
  - Fatigue [Unknown]
